FAERS Safety Report 17824861 (Version 2)
Quarter: 2020Q2

REPORT INFORMATION
  Report Type: Spontaneous
  Country: JP (occurrence: JP)
  Receive Date: 20200526
  Receipt Date: 20200601
  Transmission Date: 20200714
  Serious: Yes (Disabling)
  Sender: FDA-Public Use
  Company Number: JP-MYLANLABS-2020M1051521

PATIENT
  Age: 53 Year
  Sex: Female

DRUGS (2)
  1. TOREMIFENE [Suspect]
     Active Substance: TOREMIFENE
     Indication: BREAST CANCER
     Route: 065
  2. TAMOXIFEN TABLETS 10MG ^MYL^ [Suspect]
     Active Substance: TAMOXIFEN
     Indication: BREAST CANCER
     Route: 048

REACTIONS (1)
  - Maculopathy [Recovering/Resolving]
